FAERS Safety Report 10920576 (Version 9)
Quarter: 2015Q2

REPORT INFORMATION
  Report Type: Spontaneous
  Country: CH (occurrence: CH)
  Receive Date: 20150317
  Receipt Date: 20150428
  Transmission Date: 20150821
  Serious: Yes (Life-Threatening, Hospitalization, Other)
  Sender: FDA-Public Use
  Company Number: PHHY2015CH030129

PATIENT
  Sex: Female

DRUGS (31)
  1. CETIRIZINE [Interacting]
     Active Substance: CETIRIZINE HYDROCHLORIDE
     Indication: PRODUCT USED FOR UNKNOWN INDICATION
     Dosage: 200 MG, UNK
     Route: 065
  2. BILAXTEN [Suspect]
     Active Substance: BILASTINE
     Indication: PRURITUS
     Route: 048
  3. VALDOXAN [Concomitant]
     Active Substance: AGOMELATINE
     Indication: DEPRESSION
     Dosage: 25 MG, QD
     Route: 065
  4. ETOMIDATE. [Concomitant]
     Active Substance: ETOMIDATE
     Indication: PRODUCT USED FOR UNKNOWN INDICATION
     Dosage: 12 MG, UNK
     Route: 065
  5. RITALIN LA [Interacting]
     Active Substance: METHYLPHENIDATE HYDROCHLORIDE
     Indication: ATTENTION DEFICIT/HYPERACTIVITY DISORDER
     Dosage: 10 MG, QD
     Route: 065
  6. RITALIN LA [Interacting]
     Active Substance: METHYLPHENIDATE HYDROCHLORIDE
     Dosage: 30 MG, QD
     Route: 065
     Dates: end: 201405
  7. RITALIN SR [Interacting]
     Active Substance: METHYLPHENIDATE HYDROCHLORIDE
     Indication: ATTENTION DEFICIT/HYPERACTIVITY DISORDER
     Dosage: 20 MG, QD
     Route: 065
  8. SEQUASE [Concomitant]
     Active Substance: QUETIAPINE FUMARATE
     Indication: HALLUCINATION
     Dosage: 25 MG, QD
     Route: 048
     Dates: end: 201405
  9. PASSIFLORA [Concomitant]
     Indication: SLEEP DISORDER
  10. ROCURONIUM [Concomitant]
     Active Substance: ROCURONIUM BROMIDE
     Indication: PRODUCT USED FOR UNKNOWN INDICATION
     Dosage: 50 MG, UNK
     Route: 065
  11. SEQUASE [Concomitant]
     Active Substance: QUETIAPINE FUMARATE
     Dosage: 50 MG, UNK
     Route: 065
  12. MIANSERIN [Concomitant]
     Active Substance: MIANSERIN
     Indication: DEPRESSION
     Route: 065
  13. REDORMIN//REMIFENTANIL HYDROCHLORIDE [Concomitant]
     Indication: SLEEP DISORDER
     Dosage: 2 DF, QD (500 MG)
     Route: 065
  14. PANTOZOL [Concomitant]
     Active Substance: PANTOPRAZOLE SODIUM
     Indication: PRODUCT USED FOR UNKNOWN INDICATION
     Dosage: 20 MG, QD
     Route: 065
  15. RITALIN [Interacting]
     Active Substance: METHYLPHENIDATE HYDROCHLORIDE
     Dosage: 10 MG, QD
     Route: 065
     Dates: end: 201405
  16. CIPRALEX [Interacting]
     Active Substance: ESCITALOPRAM OXALATE
     Dosage: 300 MG, UNK
     Route: 065
  17. ZYPREXA [Concomitant]
     Active Substance: OLANZAPINE
     Indication: HALLUCINATION
     Dosage: 2.5 OT, QD
     Route: 048
     Dates: end: 201405
  18. RELAXAN [Concomitant]
     Indication: PRODUCT USED FOR UNKNOWN INDICATION
     Dosage: 3 DF, BID
     Route: 065
  19. MIANSERIN [Concomitant]
     Active Substance: MIANSERIN
     Indication: SLEEP DISORDER
     Dosage: 60 M, UNK
     Route: 065
  20. CIPRALEX [Interacting]
     Active Substance: ESCITALOPRAM OXALATE
     Indication: DEPRESSION
     Dosage: 10 MG, QD
     Route: 048
     Dates: end: 201405
  21. REDORMIN//REMIFENTANIL HYDROCHLORIDE [Concomitant]
     Indication: DEPRESSION
     Dosage: 1 G, UNK
     Route: 065
  22. RITALIN [Interacting]
     Active Substance: METHYLPHENIDATE HYDROCHLORIDE
     Indication: ATTENTION DEFICIT/HYPERACTIVITY DISORDER
     Route: 065
  23. SEROQUEL [Interacting]
     Active Substance: QUETIAPINE FUMARATE
     Indication: PRODUCT USED FOR UNKNOWN INDICATION
     Dosage: 2.5 G, UNK
     Route: 065
  24. CONCERTA [Concomitant]
     Active Substance: METHYLPHENIDATE HYDROCHLORIDE
     Indication: PRODUCT USED FOR UNKNOWN INDICATION
     Route: 065
  25. SURMONTIL [Concomitant]
     Active Substance: TRIMIPRAMINE MALEATE
     Indication: ATTENTION DEFICIT/HYPERACTIVITY DISORDER
     Dosage: 100 MG, (IN THE EVENING)
     Route: 065
  26. VALDOXAN [Concomitant]
     Active Substance: AGOMELATINE
     Indication: SLEEP DISORDER
  27. PASSIFLORA [Concomitant]
     Indication: DEPRESSION
     Route: 065
  28. BACTRIM [Concomitant]
     Active Substance: SULFAMETHOXAZOLE\TRIMETHOPRIM
     Indication: ESCHERICHIA URINARY TRACT INFECTION
     Route: 065
     Dates: start: 20140507, end: 20140513
  29. RITALIN [Interacting]
     Active Substance: METHYLPHENIDATE HYDROCHLORIDE
     Dosage: 80 MG, QD
     Route: 065
     Dates: start: 2009, end: 201405
  30. BILAXTEN [Suspect]
     Active Substance: BILASTINE
     Dosage: 400 MG, UNK
     Route: 065
  31. TRITTICO [Concomitant]
     Active Substance: TRAZODONE HYDROCHLORIDE
     Indication: ATTENTION DEFICIT/HYPERACTIVITY DISORDER
     Dosage: 50 MG, (NIGHT MEDICATION)
     Route: 065

REACTIONS (20)
  - Depression [Recovered/Resolved]
  - Toxicity to various agents [Unknown]
  - Suicide attempt [Recovered/Resolved]
  - Impulsive behaviour [Recovered/Resolved]
  - Electrocardiogram QT prolonged [Unknown]
  - Drug interaction [Unknown]
  - Maternal exposure during pregnancy [Unknown]
  - Overdose [Unknown]
  - Somatic delusion [Recovered/Resolved]
  - Fear [Recovered/Resolved]
  - Somnolence [Unknown]
  - Prurigo [Unknown]
  - Psychotic disorder [Recovered/Resolved]
  - Delusion [Recovered/Resolved]
  - Loss of consciousness [Recovering/Resolving]
  - Hallucination [Recovered/Resolved]
  - Agitation [Recovered/Resolved]
  - Restlessness [Recovered/Resolved]
  - Simplex virus test positive [Unknown]
  - Bradypnoea [Recovering/Resolving]
